FAERS Safety Report 5453506-0 (Version None)
Quarter: 2007Q3

REPORT INFORMATION
  Report Type: 
  Country: None (occurrence: None)
  Receive Date: 20070913
  Receipt Date: 20070830
  Transmission Date: 20080115
  Serious: Yes (Death)
  Sender: FDA-Public Use
  Company Number: 5844/ 2007S1007613

PATIENT
  Age: 17 Year
  Sex: Male
  Weight: 72.5755 kg

DRUGS (2)
  1. AMNESTEEM [Suspect]
     Indication: ACNE CYSTIC
     Dosage: 40 MG, QD, PO; 40 MG, TIW, PO
     Route: 048
     Dates: start: 20070412, end: 20070701
  2. AMNESTEEM [Suspect]
     Indication: ACNE CYSTIC
     Dosage: 40 MG, QD, PO; 40 MG, TIW, PO
     Route: 048
     Dates: start: 20070412, end: 20070704

REACTIONS (1)
  - DEATH [None]
